FAERS Safety Report 21091631 (Version 1)
Quarter: 2022Q3

REPORT INFORMATION
  Report Type: Spontaneous
  Country: US (occurrence: None)
  Receive Date: 20220717
  Receipt Date: 20220717
  Transmission Date: 20221026
  Serious: No
  Sender: FDA-Public Use
  Company Number: 2022A248770

PATIENT
  Sex: Female

DRUGS (2)
  1. SYMBICORT [Suspect]
     Active Substance: BUDESONIDE\FORMOTEROL FUMARATE DIHYDRATE
     Indication: Asthma
     Dosage: 160/4.5 MCG TWO RESPIRATORY INHALATIONS TWO TIMES A DAY
     Route: 055
  2. PREDNISONE [Concomitant]
     Active Substance: PREDNISONE

REACTIONS (11)
  - Dyspnoea [Unknown]
  - Infection [Unknown]
  - Gastrooesophageal reflux disease [Unknown]
  - Body height decreased [Unknown]
  - Pharyngeal erythema [Unknown]
  - Dysphonia [Not Recovered/Not Resolved]
  - Oropharyngeal pain [Unknown]
  - Candida infection [Unknown]
  - Pharyngeal swelling [Unknown]
  - Oral fungal infection [Unknown]
  - Wrong technique in device usage process [Unknown]
